FAERS Safety Report 12715835 (Version 1)
Quarter: 2016Q3

REPORT INFORMATION
  Report Type: Report from Study
  Country: US (occurrence: US)
  Receive Date: 20160906
  Receipt Date: 20160906
  Transmission Date: 20161109
  Serious: Yes (Hospitalization)
  Sender: FDA-Public Use
  Company Number: US-ASTRAZENECA-2016SE92591

PATIENT
  Age: 24925 Day
  Sex: Male
  Weight: 118.5 kg

DRUGS (18)
  1. OLAPARIB [Suspect]
     Active Substance: OLAPARIB
     Indication: PROSTATE CANCER
     Route: 048
     Dates: start: 20160510
  2. TYLENOL [Concomitant]
     Active Substance: ACETAMINOPHEN
  3. FLUTICASONE [Concomitant]
     Active Substance: FLUTICASONE\FLUTICASONE PROPIONATE
  4. DENOSUMAB [Concomitant]
     Active Substance: DENOSUMAB
  5. FERROUS SULFATE. [Concomitant]
     Active Substance: FERROUS SULFATE
  6. GABAPENTIN. [Concomitant]
     Active Substance: GABAPENTIN
  7. HCTZ/TRIAMTERENE [Concomitant]
  8. NORCO [Concomitant]
     Active Substance: ACETAMINOPHEN\HYDROCODONE BITARTRATE
  9. ATORVASTATIN [Concomitant]
     Active Substance: ATORVASTATIN
  10. FISH OIL [Concomitant]
     Active Substance: FISH OIL
  11. CYANOCOBALAMIN. [Concomitant]
     Active Substance: CYANOCOBALAMIN
  12. GLIPIZIDE. [Concomitant]
     Active Substance: GLIPIZIDE
  13. SERTRALINE [Concomitant]
     Active Substance: SERTRALINE HYDROCHLORIDE
  14. MEDI4736 [Suspect]
     Active Substance: DURVALUMAB
     Indication: PROSTATE CANCER
     Route: 042
     Dates: start: 20160510, end: 20160607
  15. ZOLPIDEM [Concomitant]
     Active Substance: ZOLPIDEM\ZOLPIDEM TARTRATE
  16. ASPIRIN. [Concomitant]
     Active Substance: ASPIRIN
  17. TAMSULOSIN [Concomitant]
     Active Substance: TAMSULOSIN
  18. METFORMIN [Concomitant]
     Active Substance: METFORMIN HYDROCHLORIDE

REACTIONS (3)
  - Pneumonia aspiration [Unknown]
  - Vomiting [Unknown]
  - Nausea [Unknown]

NARRATIVE: CASE EVENT DATE: 20160823
